FAERS Safety Report 4573615-8 (Version None)
Quarter: 2005Q1

REPORT INFORMATION
  Report Type: 
  Country: None (occurrence: None)
  Receive Date: 20050203
  Receipt Date: 20050119
  Transmission Date: 20050727
  Serious: Yes (Hospitalization)
  Sender: FDA-Public Use
  Company Number: MK200501-0176-1

PATIENT
  Age: 11 Year
  Sex: Male

DRUGS (6)
  1. TOFRANIL [Suspect]
     Indication: ATTENTION DEFICIT/HYPERACTIVITY DISORDER
     Dosage: 75 MG, DAILY, PO
     Route: 048
  2. VOMEX A ^YAMANOUCHI^ [Suspect]
     Indication: NAUSEA
     Dosage: 100 MG, DAILY, PO
     Route: 048
     Dates: start: 20041213, end: 20041216
  3. VOMEX A ^YAMANOUCHI^ [Suspect]
     Indication: VOMITING
     Dosage: 100 MG, DAILY, PO
     Route: 048
     Dates: start: 20041213, end: 20041216
  4. EQUASYM [Concomitant]
  5. FLUTICASONE PROPIONATE [Concomitant]
  6. ALBUTEROL [Concomitant]

REACTIONS (9)
  - CONDITION AGGRAVATED [None]
  - DIPLOPIA [None]
  - DRUG INTERACTION [None]
  - EYE PAIN [None]
  - GASTROINTESTINAL DISORDER [None]
  - HEADACHE [None]
  - NAUSEA [None]
  - VISION BLURRED [None]
  - VOMITING [None]
